FAERS Safety Report 6655875-2 (Version None)
Quarter: 2010Q1

REPORT INFORMATION
  Report Type: 
  Country: None (occurrence: None)
  Receive Date: 20100326
  Receipt Date: 20100326
  Transmission Date: 20100710
  Serious: Yes (Other)
  Sender: FDA-Public Use
  Company Number: None

PATIENT
  Sex: Female
  Weight: 74.8435 kg

DRUGS (2)
  1. ACTONEL WITH CALCIUM (COPACKAGED) [Suspect]
     Indication: OSTEOPENIA
     Dosage: 35MG. - CALCIUM SEPARATELY 6DAYS 1X WEEK MOUTH
     Route: 048
     Dates: start: 20100214
  2. ACTONEL WITH CALCIUM (COPACKAGED) [Suspect]
     Indication: OSTEOPENIA
     Dosage: 35MG. - CALCIUM SEPARATELY 6DAYS 1X WEEK MOUTH
     Route: 048
     Dates: start: 20100221

REACTIONS (7)
  - ARTHRALGIA [None]
  - BONE PAIN [None]
  - FATIGUE [None]
  - GAIT DISTURBANCE [None]
  - MEMORY IMPAIRMENT [None]
  - MYALGIA [None]
  - PAIN [None]
